FAERS Safety Report 8531482 (Version 2)
Quarter: 2012Q4

REPORT INFORMATION
  Report Type: 
  Country: US (occurrence: US)
  Receive Date: 20120426
  Receipt Date: 20121011
  Transmission Date: 20130627
  Serious: Yes (Other)
  Sender: FDA-Public Use
  Company Number: PHEH2012US008474

PATIENT
  Age: 67 Year
  Sex: Female

DRUGS (8)
  1. VALTURNA [Suspect]
     Dosage: 300/320 mg, QD
     Dates: end: 201204
  2. METANAX [Concomitant]
     Dosage: UNK UKN, UNK
  3. TORSEMIDE [Concomitant]
     Dosage: 20 mg, UNK
  4. FLEXERIL [Concomitant]
     Dosage: UNK UKN, UNK
  5. POTASSIUM [Concomitant]
     Dosage: UNK UKN, UNK
  6. ASPIRIN [Concomitant]
  7. COLESTIPOL [Concomitant]
     Dosage: UNK UKN, UNK
  8. TRILIPIX [Concomitant]
     Dosage: UNK UKN, UNK

REACTIONS (1)
  - Cerebrovascular accident [Unknown]
